FAERS Safety Report 22098948 (Version 2)
Quarter: 2023Q2

REPORT INFORMATION
  Report Type: Spontaneous
  Country: US (occurrence: US)
  Receive Date: 20230315
  Receipt Date: 20230614
  Transmission Date: 20230721
  Serious: Yes (Other)
  Sender: FDA-Public Use
  Company Number: US-PROPHARMA-940

PATIENT
  Age: 43 Year
  Sex: Female

DRUGS (2)
  1. AYVAKIT [Suspect]
     Active Substance: AVAPRITINIB
     Indication: Systemic mastocytosis
     Route: 065
     Dates: start: 20210805
  2. AYVAKIT [Suspect]
     Active Substance: AVAPRITINIB
     Route: 065
     Dates: start: 20210805

REACTIONS (4)
  - Condition aggravated [Unknown]
  - Metastases to bone [Unknown]
  - Fluid retention [Unknown]
  - Weight increased [Unknown]

NARRATIVE: CASE EVENT DATE: 20230119
